FAERS Safety Report 9341448 (Version 1)
Quarter: 2013Q2

REPORT INFORMATION
  Report Type: Spontaneous
  Country: US (occurrence: None)
  Receive Date: 20130610
  Receipt Date: 20130610
  Transmission Date: 20140414
  Serious: Yes (Other)
  Sender: FDA-Public Use
  Company Number: None

PATIENT
  Sex: Female
  Weight: 74.84 kg

DRUGS (1)
  1. MINOCYCLINE [Suspect]
     Indication: ROSACEA
     Dosage: BY MOUTH
     Dates: start: 20120801, end: 20130513

REACTIONS (3)
  - Contusion [None]
  - Scar [None]
  - Skin discolouration [None]
